FAERS Safety Report 18644301 (Version 1)
Quarter: 2020Q4

REPORT INFORMATION
  Report Type: Spontaneous
  Country: JP (occurrence: JP)
  Receive Date: 20201221
  Receipt Date: 20201221
  Transmission Date: 20210114
  Serious: Yes (Other)
  Sender: FDA-Public Use
  Company Number: NVSC2020JP336535

PATIENT
  Age: 28 Year
  Sex: Female

DRUGS (1)
  1. CYCLOSPORINE. [Suspect]
     Active Substance: CYCLOSPORINE
     Indication: GENITAL ULCERATION
     Dosage: 200 MG, QD
     Route: 065
     Dates: start: 200703

REACTIONS (2)
  - Renal injury [Unknown]
  - Product use in unapproved indication [Unknown]
